FAERS Safety Report 7570285-1 (Version None)
Quarter: 2011Q2

REPORT INFORMATION
  Report Type: 
  Country: None (occurrence: None)
  Receive Date: 20110620
  Receipt Date: 20110609
  Transmission Date: 20111010
  Serious: Yes (Hospitalization)
  Sender: FDA-Public Use
  Company Number: UTC-007803

PATIENT
  Age: 55 Year
  Sex: Female

DRUGS (3)
  1. DIURETICS (DIURETICS) [Concomitant]
  2. ADCIRCA [Concomitant]
  3. TYVASO [Suspect]
     Indication: PULMONARY ARTERIAL HYPERTENSION
     Dosage: 216 MCG (54 MCG,4 IN 1 D),INHALATION
     Route: 055
     Dates: start: 20110408

REACTIONS (5)
  - OXYGEN SATURATION DECREASED [None]
  - CEREBROVASCULAR ACCIDENT [None]
  - HYPERTENSION [None]
  - EPISTAXIS [None]
  - PLATELET COUNT DECREASED [None]
